FAERS Safety Report 16683516 (Version 1)
Quarter: 2019Q3

REPORT INFORMATION
  Report Type: Spontaneous
  Country: US (occurrence: US)
  Receive Date: 20190808
  Receipt Date: 20190808
  Transmission Date: 20191004
  Serious: No
  Sender: FDA-Public Use
  Company Number: US-ALLERGAN-1858087US

PATIENT
  Sex: Male

DRUGS (2)
  1. ANDROGEL [Concomitant]
     Active Substance: TESTOSTERONE
     Indication: HYPOPITUITARISM
     Route: 061
  2. ANDRODERM [Suspect]
     Active Substance: TESTOSTERONE
     Indication: HYPOPITUITARISM
     Dosage: 1 DF, QD
     Route: 062
     Dates: start: 201604

REACTIONS (6)
  - Condition aggravated [Unknown]
  - Application site scab [Not Recovered/Not Resolved]
  - Application site erythema [Recovered/Resolved]
  - Application site urticaria [Not Recovered/Not Resolved]
  - Product dose omission [Unknown]
  - Thyroid hormones decreased [Unknown]
